FAERS Safety Report 8348092-1 (Version None)
Quarter: 2012Q2

REPORT INFORMATION
  Report Type: 
  Country: None (occurrence: None)
  Receive Date: 20120509
  Receipt Date: 20120502
  Transmission Date: 20120825
  Serious: Yes (Other)
  Sender: FDA-Public Use
  Company Number: US-JNJFOC-20110308184

PATIENT
  Sex: Male
  Weight: 136.08 kg

DRUGS (5)
  1. LEVAQUIN [Suspect]
     Indication: PROPHYLAXIS
     Route: 042
  2. LEVAQUIN [Suspect]
     Indication: PRODUCT USED FOR UNKNOWN INDICATION
     Route: 048
  3. ANTIBIOTICS NOS [Suspect]
     Indication: PROPHYLAXIS
     Route: 042
  4. LEVAQUIN [Suspect]
     Route: 048
  5. LEVAQUIN [Suspect]
     Indication: INFECTION PROPHYLAXIS
     Route: 042

REACTIONS (2)
  - INCISION SITE BLISTER [None]
  - SUBCUTANEOUS ABSCESS [None]
